FAERS Safety Report 7511397-8 (Version None)
Quarter: 2011Q2

REPORT INFORMATION
  Report Type: 
  Country: None (occurrence: None)
  Receive Date: 20110531
  Receipt Date: 20110519
  Transmission Date: 20111010
  Serious: Yes (Hospitalization, Other)
  Sender: FDA-Public Use
  Company Number: US-BAYER-201033995NA

PATIENT
  Age: 17 Year
  Sex: Female
  Weight: 45.351 kg

DRUGS (1)
  1. YAZ [Suspect]
     Indication: CONTRACEPTION
     Dosage: UNK UNK, QD
     Route: 048
     Dates: start: 20070701, end: 20080701

REACTIONS (3)
  - INJURY [None]
  - DEEP VEIN THROMBOSIS [None]
  - PAIN [None]
